FAERS Safety Report 19304720 (Version 2)
Quarter: 2021Q3

REPORT INFORMATION
  Report Type: Report from Study
  Country: IT (occurrence: IT)
  Receive Date: 20210525
  Receipt Date: 20210707
  Transmission Date: 20211014
  Serious: Yes (Other)
  Sender: FDA-Public Use
  Company Number: IT-TAKEDA-IT202026227

PATIENT
  Age: 61 Year
  Sex: Female

DRUGS (12)
  1. RESOLOR [Concomitant]
     Active Substance: PRUCALOPRIDE SUCCINATE
     Indication: SEPSIS
     Route: 065
  2. SUPRADYN [MINERALS NOS;VITAMINS NOS] [Concomitant]
     Indication: NUTRITIONAL SUPPLEMENTATION
     Route: 065
  3. TEDUGLUTIDE [Suspect]
     Active Substance: TEDUGLUTIDE
     Dosage: 0.050 MILLIGRAM/KILOGRAM (3.000), 7 DOSES PER WEEK
     Route: 065
     Dates: start: 20191231, end: 20200120
  4. DAFLON [DIOSMIN;HESPERIDIN] [Concomitant]
     Active Substance: DIOSMIN\HESPERIDIN
     Indication: PAIN IN EXTREMITY
     Route: 065
  5. TEDUGLUTIDE [Suspect]
     Active Substance: TEDUGLUTIDE
     Indication: SHORT-BOWEL SYNDROME
     Dosage: 0.050 MILLIGRAM/KILOGRAM (3.000), 7 DOSES PER WEEK
     Route: 065
     Dates: start: 20181029, end: 20190510
  6. TEDUGLUTIDE [Suspect]
     Active Substance: TEDUGLUTIDE
     Dosage: 0.050 MILLIGRAM/KILOGRAM (3.000), 7 DOSES PER WEEK
     Route: 065
     Dates: start: 20191231, end: 20200120
  7. TEDUGLUTIDE [Suspect]
     Active Substance: TEDUGLUTIDE
     Dosage: 0.050 MILLIGRAM/KILOGRAM (3.000), 7 DOSES PER WEEK
     Route: 065
     Dates: start: 20191231, end: 20200120
  8. TEDUGLUTIDE [Suspect]
     Active Substance: TEDUGLUTIDE
     Dosage: 0.050 MILLIGRAM/KILOGRAM (3.000), 7 DOSES PER WEEK
     Route: 065
     Dates: start: 20191231, end: 20200120
  9. TEDUGLUTIDE [Suspect]
     Active Substance: TEDUGLUTIDE
     Indication: SHORT-BOWEL SYNDROME
     Dosage: 0.050 MILLIGRAM/KILOGRAM (3.000), 7 DOSES PER WEEK
     Route: 065
     Dates: start: 20181029, end: 20190510
  10. TEDUGLUTIDE [Suspect]
     Active Substance: TEDUGLUTIDE
     Indication: SHORT-BOWEL SYNDROME
     Dosage: 0.050 MILLIGRAM/KILOGRAM (3.000), 7 DOSES PER WEEK
     Route: 065
     Dates: start: 20181029, end: 20190510
  11. TEDUGLUTIDE [Suspect]
     Active Substance: TEDUGLUTIDE
     Indication: SHORT-BOWEL SYNDROME
     Dosage: 0.050 MILLIGRAM/KILOGRAM (3.000), 7 DOSES PER WEEK
     Route: 065
     Dates: start: 20181029, end: 20190510
  12. MODURETIC 5?50 [Concomitant]
     Active Substance: AMILORIDE HYDROCHLORIDE\HYDROCHLOROTHIAZIDE
     Indication: PRODUCT USED FOR UNKNOWN INDICATION
     Route: 065

REACTIONS (1)
  - Device related sepsis [Recovered/Resolved]

NARRATIVE: CASE EVENT DATE: 202005
